FAERS Safety Report 9293934 (Version 1)
Quarter: 2013Q1

REPORT INFORMATION
  Report Type: Spontaneous
  Country: US (occurrence: None)
  Receive Date: 20121221
  Receipt Date: 20121221
  Transmission Date: 20140127
  Serious: Yes (Other)
  Sender: FDA-Public Use
  Company Number: M-12-036

PATIENT
  Age: 54 Year
  Sex: Female

DRUGS (3)
  1. HYDROMORPHONE HCL [Suspect]
     Dosage: 1-2 TABS EVERY 4-6HRS.
     Dates: start: 20121020
  2. SYNTHROID [Concomitant]
  3. DIOXIDE [Concomitant]

REACTIONS (1)
  - Pruritus [None]
